FAERS Safety Report 16980472 (Version 1)
Quarter: 2019Q4

REPORT INFORMATION
  Report Type: Other
  Country: LB (occurrence: LB)
  Receive Date: 20191031
  Receipt Date: 20191031
  Transmission Date: 20200122
  Serious: Yes (Death)
  Sender: FDA-Public Use
  Company Number: LB-VITRUVIAS THERAPEUTICS-2076282

PATIENT
  Age: 33 Year
  Sex: Female
  Weight: 70 kg

DRUGS (1)
  1. LIDOCAINE. [Suspect]
     Active Substance: LIDOCAINE
     Indication: ANAESTHESIA
     Route: 058

REACTIONS (12)
  - Mental status changes [None]
  - Septic shock [Fatal]
  - Generalised tonic-clonic seizure [None]
  - Drooling [None]
  - Myoclonus [None]
  - Cardiac arrest [None]
  - Cyanosis [None]
  - Somnolence [None]
  - Loss of consciousness [None]
  - Dyspnoea [None]
  - Brain injury [None]
  - Dizziness [None]
